FAERS Safety Report 6931209-0 (Version None)
Quarter: 2010Q3

REPORT INFORMATION
  Report Type: 
  Country: None (occurrence: None)
  Receive Date: 20100813
  Receipt Date: 20100727
  Transmission Date: 20110219
  Serious: Yes (Other)
  Sender: FDA-Public Use
  Company Number: ACO_01222_2010

PATIENT
  Sex: Female
  Weight: 130.9535 kg

DRUGS (8)
  1. AMPYRA [Suspect]
     Indication: GAIT DISTURBANCE
     Dosage: (10 MG 1X/12 HOURS ORAL)
     Route: 048
     Dates: start: 20100528
  2. ZANAFLEX [Suspect]
     Indication: PRODUCT USED FOR UNKNOWN INDICATION
     Dosage: (4 MG, DF)
  3. TYSABRI [Suspect]
     Indication: PRODUCT USED FOR UNKNOWN INDICATION
     Dosage: (300 MG 1X/MONTH)
  4. PROZAC [Concomitant]
  5. KLONOPIN [Concomitant]
  6. LASIX [Concomitant]
  7. DETROL LA [Concomitant]
  8. BACLOFEN [Concomitant]

REACTIONS (18)
  - ABDOMINAL DISCOMFORT [None]
  - CHEST DISCOMFORT [None]
  - CONDITION AGGRAVATED [None]
  - DEPRESSION [None]
  - DIZZINESS [None]
  - DYSARTHRIA [None]
  - EAR INFECTION [None]
  - EYE MOVEMENT DISORDER [None]
  - FALL [None]
  - FATIGUE [None]
  - GAIT DISTURBANCE [None]
  - HEADACHE [None]
  - HEMIPARESIS [None]
  - INFLUENZA LIKE ILLNESS [None]
  - MULTIPLE SCLEROSIS RELAPSE [None]
  - SENSATION OF HEAVINESS [None]
  - VISION BLURRED [None]
  - VISUAL IMPAIRMENT [None]
